FAERS Safety Report 9927902 (Version 1)
Quarter: 2014Q1

REPORT INFORMATION
  Report Type: Spontaneous
  Country: US (occurrence: None)
  Receive Date: 20140226
  Receipt Date: 20140226
  Transmission Date: 20141002
  Serious: Yes (Death)
  Sender: FDA-Public Use
  Company Number: None

PATIENT
  Age: 58 Year
  Sex: Female
  Weight: 50.35 kg

DRUGS (2)
  1. SOFOSBUVIR [Suspect]
     Indication: HEPATITIS C
     Route: 048
     Dates: start: 20140206, end: 20140207
  2. RIBAVIRIN [Suspect]
     Dosage: 1000MG ?600 QAM?400 QPM?PO
     Route: 048

REACTIONS (4)
  - Multi-organ failure [None]
  - Abdominal pain [None]
  - Pneumonia [None]
  - Bacteraemia [None]
